FAERS Safety Report 16071865 (Version 1)
Quarter: 2019Q1

REPORT INFORMATION
  Report Type: Spontaneous
  Country: US (occurrence: US)
  Receive Date: 20190314
  Receipt Date: 20190314
  Transmission Date: 20190418
  Serious: No
  Sender: FDA-Public Use
  Company Number: US-009507513-1903USA005924

PATIENT
  Age: 29 Year
  Sex: Female
  Weight: 70.75 kg

DRUGS (1)
  1. NEXPLANON [Suspect]
     Active Substance: ETONOGESTREL
     Indication: CONTRACEPTION
     Dosage: LEFT ARM, IMPLANT, ADVISED REMOVAL DATE WAS 4 YEARS FROM INSERTION DATE BY PLANNED PARENTHOOD
     Route: 059
     Dates: start: 20180509

REACTIONS (8)
  - Fatigue [Not Recovered/Not Resolved]
  - Depression [Not Recovered/Not Resolved]
  - Circumstance or information capable of leading to medication error [Unknown]
  - Anger [Not Recovered/Not Resolved]
  - Bradykinesia [Not Recovered/Not Resolved]
  - Acne [Not Recovered/Not Resolved]
  - Depressed mood [Not Recovered/Not Resolved]
  - Headache [Not Recovered/Not Resolved]

NARRATIVE: CASE EVENT DATE: 201809
